FAERS Safety Report 6912861-2 (Version None)
Quarter: 2010Q3

REPORT INFORMATION
  Report Type: 
  Country: None (occurrence: None)
  Receive Date: 20100806
  Receipt Date: 20090225
  Transmission Date: 20110219
  Serious: No
  Sender: FDA-Public Use
  Company Number: US-PFIZER INC-2008096319

PATIENT

DRUGS (5)
  1. DETROL LA [Suspect]
  2. SINEMET [Interacting]
     Dosage: UNK
  3. COREG [Concomitant]
     Dosage: UNK
  4. ALDACTONE [Concomitant]
     Dosage: UNK
  5. WARFARIN SODIUM [Concomitant]
     Dosage: UNK

REACTIONS (2)
  - COGNITIVE DISORDER [None]
  - DRUG INTERACTION [None]
